FAERS Safety Report 9882947 (Version 2)
Quarter: 2014Q1

REPORT INFORMATION
  Report Type: Spontaneous
  Country: NO (occurrence: NO)
  Receive Date: 20140208
  Receipt Date: 20140212
  Transmission Date: 20141002
  Serious: Yes (Other)
  Sender: FDA-Public Use
  Company Number: NO-ROCHE-1345028

PATIENT
  Age: 52 Year
  Sex: Female

DRUGS (2)
  1. CAPECITABINE [Suspect]
     Indication: BREAST CANCER METASTATIC
     Route: 065
     Dates: start: 20110111
  2. LAPATINIB [Concomitant]
     Indication: BREAST CANCER
     Route: 065
     Dates: start: 20110111, end: 20110831

REACTIONS (1)
  - Cardiac disorder [Unknown]
